FAERS Safety Report 10534509 (Version 1)
Quarter: 2014Q4

REPORT INFORMATION
  Report Type: Spontaneous
  Country: US (occurrence: None)
  Receive Date: 20141021
  Receipt Date: 20141021
  Transmission Date: 20150529
  Serious: Yes (Other)
  Sender: FDA-Public Use
  Company Number: None

PATIENT
  Age: 71 Year
  Sex: Female
  Weight: 61.24 kg

DRUGS (1)
  1. OSPHENA [Suspect]
     Active Substance: OSPEMIFENE
     Indication: VULVOVAGINAL DRYNESS
     Dosage: ONE
     Route: 048
     Dates: start: 20140401, end: 20140501

REACTIONS (1)
  - Pain in extremity [None]

NARRATIVE: CASE EVENT DATE: 20141020
